FAERS Safety Report 8474544-X (Version None)
Quarter: 2012Q2

REPORT INFORMATION
  Report Type: 
  Country: None (occurrence: None)
  Receive Date: 20120628
  Receipt Date: 20120620
  Transmission Date: 20120825
  Serious: Yes (Other)
  Sender: FDA-Public Use
  Company Number: US-BAYER-2012-062544

PATIENT
  Age: 27 Year
  Sex: Female
  Weight: 73 kg

DRUGS (4)
  1. AUGMENTIN '125' [Concomitant]
     Indication: VULVA CYST
     Dosage: UNK
     Dates: start: 20111108
  2. DOXYCYCLINE [Concomitant]
     Indication: VULVA CYST
     Dosage: UNK
     Dates: start: 20111108
  3. AMOXICILLIN [Concomitant]
     Indication: VULVA CYST
     Dosage: 500 MG, TID
     Route: 048
     Dates: start: 20111108
  4. YAZ [Suspect]

REACTIONS (1)
  - THROMBOPHLEBITIS SUPERFICIAL [None]
